FAERS Safety Report 13661357 (Version 1)
Quarter: 2017Q2

REPORT INFORMATION
  Report Type: Spontaneous
  Country: US (occurrence: US)
  Receive Date: 20170616
  Receipt Date: 20170616
  Transmission Date: 20170830
  Serious: No
  Sender: FDA-Public Use
  Company Number: US-US WORLDMEDS, LLC-USW201612-000834

PATIENT
  Age: 50 Year
  Sex: Female
  Weight: 94.8 kg

DRUGS (21)
  1. NEUPRO [Concomitant]
     Active Substance: ROTIGOTINE
     Dates: start: 2013
  2. QUDEXY XR [Concomitant]
     Active Substance: TOPIRAMATE
     Dates: start: 2016
  3. HYDROCODONE [Concomitant]
     Active Substance: HYDROCODONE
     Dates: start: 2015
  4. RIZATRIPTAN. [Concomitant]
     Active Substance: RIZATRIPTAN
  5. NEXIUM [Concomitant]
     Active Substance: ESOMEPRAZOLE MAGNESIUM
     Dates: start: 2015
  6. NASONEX [Concomitant]
     Active Substance: MOMETASONE FUROATE
     Dates: start: 2015
  7. SEROQUEL [Concomitant]
     Active Substance: QUETIAPINE FUMARATE
     Dates: start: 2000
  8. TRIAZOLAM. [Concomitant]
     Active Substance: TRIAZOLAM
     Dates: start: 2013
  9. DIPHENHIST [Concomitant]
     Active Substance: DIPHENHYDRAMINE HYDROCHLORIDE
     Dates: start: 2012
  10. SINGULAIR [Concomitant]
     Active Substance: MONTELUKAST SODIUM
     Dates: start: 2014
  11. AZELASTINE [Concomitant]
     Active Substance: AZELASTINE
     Dates: start: 2015
  12. ALORA [Concomitant]
     Active Substance: ESTRADIOL
     Dates: start: 2000
  13. TOPAMAX [Concomitant]
     Active Substance: TOPIRAMATE
     Dates: start: 2014
  14. TIGAN [Concomitant]
     Active Substance: TRIMETHOBENZAMIDE HYDROCHLORIDE
     Dates: start: 2015
  15. VENLAFAXINE [Concomitant]
     Active Substance: VENLAFAXINE HYDROCHLORIDE
     Dates: start: 2015
  16. EXCEDRIN [Concomitant]
     Active Substance: ACETAMINOPHEN\ASPIRIN\CAFFEINE
  17. APOKYN [Suspect]
     Active Substance: APOMORPHINE HYDROCHLORIDE
     Indication: PARKINSON^S DISEASE
     Route: 058
  18. ATORVASTATIN [Concomitant]
     Active Substance: ATORVASTATIN
     Dates: start: 2013
  19. RYTARY [Concomitant]
     Active Substance: CARBIDOPA\LEVODOPA
     Dates: start: 2005
  20. AMANTADINE. [Concomitant]
     Active Substance: AMANTADINE HYDROCHLORIDE
     Dates: start: 2011
  21. LINZESS [Concomitant]
     Active Substance: LINACLOTIDE

REACTIONS (1)
  - Fall [Recovered/Resolved]

NARRATIVE: CASE EVENT DATE: 20161127
